FAERS Safety Report 10522813 (Version 1)
Quarter: 2014Q4

REPORT INFORMATION
  Report Type: Spontaneous
  Country: BE (occurrence: BE)
  Receive Date: 20141016
  Receipt Date: 20141016
  Transmission Date: 20150528
  Serious: Yes (Disabling, Congenital Anomaly, Other)
  Sender: FDA-Public Use
  Company Number: BE-BANPHARM-20143144

PATIENT
  Sex: Female
  Weight: 3.71 kg

DRUGS (1)
  1. VALPROIC ACID UNKNOWN PRODUCT [Suspect]
     Active Substance: VALPROIC ACID
     Indication: FOETAL EXPOSURE DURING PREGNANCY
     Dosage: 500 MG, BID,

REACTIONS (6)
  - Psychomotor skills impaired [Not Recovered/Not Resolved]
  - Foetal exposure during pregnancy [Recovered/Resolved]
  - Craniosynostosis [Not Recovered/Not Resolved]
  - Atrial septal defect [Recovered/Resolved]
  - Ear malformation [Not Recovered/Not Resolved]
  - Deafness congenital [Not Recovered/Not Resolved]
